FAERS Safety Report 26065143 (Version 2)
Quarter: 2025Q4

REPORT INFORMATION
  Report Type: Spontaneous
  Country: US (occurrence: US)
  Receive Date: 20251119
  Receipt Date: 20251204
  Transmission Date: 20260118
  Serious: No
  Sender: VERTEX
  Company Number: US-VERTEX PHARMACEUTICALS-2025-019207

PATIENT
  Age: 74 Year
  Sex: Male

DRUGS (3)
  1. JOURNAVX [Suspect]
     Active Substance: SUZETRIGINE
     Indication: Pain
     Dosage: 100 MG, SINGLE (LOADING DOSE)
     Dates: start: 20251111, end: 20251111
  2. JOURNAVX [Suspect]
     Active Substance: SUZETRIGINE
     Dosage: 50 MG, BID (EVERY 12 HOURS)
     Dates: start: 202511
  3. CELEBREX [Concomitant]
     Active Substance: CELECOXIB
     Dosage: UNK

REACTIONS (2)
  - Pruritus [Recovering/Resolving]
  - Ocular hyperaemia [Recovering/Resolving]

NARRATIVE: CASE EVENT DATE: 20251111
